FAERS Safety Report 20849097 (Version 1)
Quarter: 2022Q2

REPORT INFORMATION
  Report Type: Report from Study
  Country: US (occurrence: US)
  Receive Date: 20220519
  Receipt Date: 20220519
  Transmission Date: 20220721
  Serious: No
  Sender: FDA-Public Use
  Company Number: US-NOVARTISTESTPH-NVSC2022US114835

PATIENT
  Age: 81 Year
  Sex: Male

DRUGS (1)
  1. ENTRESTO [Suspect]
     Active Substance: SACUBITRIL\VALSARTAN
     Indication: Product used for unknown indication
     Dosage: 1 DOSAGE FORM(49/51 MG), BID
     Route: 048
     Dates: start: 2018

REACTIONS (4)
  - Asthenia [Unknown]
  - Oropharyngeal pain [Unknown]
  - Incorrect dose administered [Unknown]
  - Wrong dosage formulation [Unknown]
